FAERS Safety Report 12937360 (Version 1)
Quarter: 2016Q4

REPORT INFORMATION
  Report Type: Spontaneous
  Country: US (occurrence: US)
  Receive Date: 20161114
  Receipt Date: 20161114
  Transmission Date: 20170207
  Serious: No
  Sender: FDA-Public Use
  Company Number: US-PFIZER INC-2016525988

PATIENT
  Age: 30 Year
  Sex: Female

DRUGS (2)
  1. CYTOTEC [Suspect]
     Active Substance: MISOPROSTOL
     Indication: ABORTION SPONTANEOUS
     Dosage: 400 UG, SINGLE
     Route: 048
     Dates: start: 20161104, end: 20161104
  2. CYTOTEC [Suspect]
     Active Substance: MISOPROSTOL
     Dosage: 200 UG, SINGLE
     Route: 067
     Dates: start: 20161104, end: 20161104

REACTIONS (7)
  - Increased appetite [Not Recovered/Not Resolved]
  - Abdominal pain upper [Not Recovered/Not Resolved]
  - Fatigue [Not Recovered/Not Resolved]
  - Nausea [Not Recovered/Not Resolved]
  - Product use issue [Unknown]
  - Vaginal haemorrhage [Recovered/Resolved]
  - Feeling abnormal [Not Recovered/Not Resolved]

NARRATIVE: CASE EVENT DATE: 201611
